FAERS Safety Report 7642053 (Version 8)
Quarter: 2014Q1

REPORT INFORMATION
  Report Type: Spontaneous
  Country: BR (occurrence: BR)
  Receive Date: 20101026
  Receipt Date: 20140210
  Transmission Date: 20141002
  Serious: Yes (Hospitalization)
  Sender: FDA-Public Use
  Company Number: BR-US-EMD SERONO, INC.-7022772

PATIENT
  Age: 51 Year
  Sex: Female

DRUGS (10)
  1. REBIF [Suspect]
     Indication: RELAPSING-REMITTING MULTIPLE SCLEROSIS
     Route: 058
     Dates: start: 200701
  2. PROPANOLOL [Concomitant]
     Indication: PRODUCT USED FOR UNKNOWN INDICATION
  3. AMITRIPTYLINE [Concomitant]
     Indication: PRODUCT USED FOR UNKNOWN INDICATION
     Route: 048
  4. GABAPENTIN [Concomitant]
     Indication: NEURALGIA
     Route: 048
  5. SODIUM DYPIRONE [Concomitant]
     Indication: PRODUCT USED FOR UNKNOWN INDICATION
     Route: 048
  6. IBUPROFEN [Concomitant]
     Indication: PRODUCT USED FOR UNKNOWN INDICATION
     Route: 048
  7. BENZETACIL                         /01141001/ [Concomitant]
     Indication: ERYSIPELAS
  8. AMYTRIL [Concomitant]
     Indication: NEURALGIA
  9. MELILOTUS OFFICINALIS [Concomitant]
     Indication: CARDIOVASCULAR DISORDER
  10. VITIS VINIFERA [Concomitant]
     Indication: CARDIOVASCULAR DISORDER

REACTIONS (9)
  - Erysipelas [Recovered/Resolved]
  - Angiopathy [Unknown]
  - Asthenia [Recovered/Resolved]
  - Pain [Not Recovered/Not Resolved]
  - Headache [Not Recovered/Not Resolved]
  - Fatigue [Not Recovered/Not Resolved]
  - Injection site erythema [Not Recovered/Not Resolved]
  - Injection site pain [Unknown]
  - Pyrexia [Recovered/Resolved]
